FAERS Safety Report 4735547-1 (Version None)
Quarter: 2005Q3

REPORT INFORMATION
  Report Type: 
  Country: None (occurrence: None)
  Receive Date: 20050805
  Receipt Date: 20020211
  Transmission Date: 20060218
  Serious: Yes (Hospitalization, Disabling)
  Sender: FDA-Public Use
  Company Number: US-MERCK-0202USA01241

PATIENT
  Age: 75 Year
  Sex: Male

DRUGS (2)
  1. VIOXX [Suspect]
     Indication: TENDON INJURY
     Route: 048
     Dates: start: 20010601, end: 20010601
  2. VIOXX [Suspect]
     Indication: ARTHRITIS
     Route: 048
     Dates: start: 20010601, end: 20010601

REACTIONS (17)
  - ANOREXIA [None]
  - ANTISOCIAL BEHAVIOUR [None]
  - ANXIETY [None]
  - CARPAL TUNNEL DECOMPRESSION [None]
  - CHEST DISCOMFORT [None]
  - CONVULSION [None]
  - DEPRESSION [None]
  - DISTURBANCE IN ATTENTION [None]
  - HEADACHE [None]
  - INSOMNIA [None]
  - PNEUMONIA [None]
  - RHINALGIA [None]
  - RHINITIS [None]
  - SENSATION OF PRESSURE [None]
  - SINUS HEADACHE [None]
  - SUICIDAL IDEATION [None]
  - TINNITUS [None]
